FAERS Safety Report 16930486 (Version 8)
Quarter: 2021Q2

REPORT INFORMATION
  Report Type: Spontaneous
  Country: US (occurrence: US)
  Receive Date: 20191017
  Receipt Date: 20210607
  Transmission Date: 20210716
  Serious: No
  Sender: FDA-Public Use
  Company Number: US-PFIZER INC-2017096942

PATIENT
  Age: 64 Year
  Sex: Male

DRUGS (4)
  1. LYRICA [Suspect]
     Active Substance: PREGABALIN
     Indication: ARTHRALGIA
     Dosage: 25 MG, UNK
  2. LYRICA [Suspect]
     Active Substance: PREGABALIN
     Indication: NEUROPATHY PERIPHERAL
     Dosage: 150 MG, AS NEEDED (TAKE 1 CAPSULE EVERY 6 HOURS FOR PAIN AS NEEDED)
     Route: 048
  3. LYRICA [Suspect]
     Active Substance: PREGABALIN
     Indication: PAIN
     Dosage: 150 MG, 4X/DAY (EVERY 6 HOURS AS NEEDED/EVERY 6HR)
     Route: 048
  4. LYRICA [Suspect]
     Active Substance: PREGABALIN
     Indication: INTERVERTEBRAL DISC DEGENERATION
     Dosage: 150 MG, 4X/DAY (EVERY 6 HOURS AS NEEDED)
     Route: 048
     Dates: start: 2005

REACTIONS (3)
  - Memory impairment [Recovered/Resolved]
  - Frustration tolerance decreased [Unknown]
  - Muscle spasms [Unknown]
